FAERS Safety Report 14904236 (Version 1)
Quarter: 2018Q2

REPORT INFORMATION
  Report Type: Spontaneous
  Country: US (occurrence: US)
  Receive Date: 20180516
  Receipt Date: 20180516
  Transmission Date: 20180711
  Serious: Yes (Other)
  Sender: FDA-Public Use
  Company Number: US-BEH-2018090618

PATIENT
  Age: 69 Year
  Sex: Female
  Weight: 102.4 kg

DRUGS (24)
  1. HIZENTRA [Suspect]
     Active Substance: HUMAN IMMUNOGLOBULIN G
     Dosage: 26 G, QOW
     Route: 058
     Dates: start: 20150721
  2. LANTUS [Concomitant]
     Active Substance: INSULIN GLARGINE
     Route: 065
  3. WELLBUTRIN [Concomitant]
     Active Substance: BUPROPION HYDROCHLORIDE
     Route: 065
  4. VENTOLIN [Concomitant]
     Active Substance: ALBUTEROL SULFATE
     Route: 065
  5. XOPENEX [Concomitant]
     Active Substance: LEVALBUTEROL HYDROCHLORIDE
     Route: 065
  6. HIZENTRA [Suspect]
     Active Substance: HUMAN IMMUNOGLOBULIN G
     Dosage: UNK
     Route: 058
  7. AMOXICILLIN. [Concomitant]
     Active Substance: AMOXICILLIN
     Route: 065
  8. LASIX [Concomitant]
     Active Substance: FUROSEMIDE
     Route: 065
  9. ACETAMINOPHEN. [Concomitant]
     Active Substance: ACETAMINOPHEN
     Route: 065
  10. KLOR-CON [Concomitant]
     Active Substance: POTASSIUM CHLORIDE
     Route: 065
  11. MECLIZINE [Concomitant]
     Active Substance: MECLIZINE HYDROCHLORIDE
     Route: 065
  12. HIZENTRA [Suspect]
     Active Substance: HUMAN IMMUNOGLOBULIN G
     Dosage: UNK
     Route: 058
  13. DULERA [Concomitant]
     Active Substance: FORMOTEROL FUMARATE DIHYDRATE\MOMETASONE FUROATE
     Route: 065
  14. ALLOPURINOL. [Concomitant]
     Active Substance: ALLOPURINOL
     Route: 065
  15. LIDOCAINE. [Concomitant]
     Active Substance: LIDOCAINE
     Route: 065
  16. EPINEPHRINE. [Concomitant]
     Active Substance: EPINEPHRINE
     Route: 065
  17. COENZYME Q10 [Concomitant]
     Active Substance: UBIDECARENONE
     Route: 065
  18. ZEBETA [Concomitant]
     Active Substance: BISOPROLOL FUMARATE
     Route: 065
  19. HIZENTRA [Suspect]
     Active Substance: HUMAN IMMUNOGLOBULIN G
     Indication: IMMUNODEFICIENCY COMMON VARIABLE
     Dosage: UNK
     Route: 058
  20. LEVALBUTEROL. [Concomitant]
     Active Substance: LEVALBUTEROL
     Route: 065
  21. AMARYL [Concomitant]
     Active Substance: GLIMEPIRIDE
     Route: 065
  22. FENOFIBRATE. [Concomitant]
     Active Substance: FENOFIBRATE
     Route: 065
  23. DIPHENHYDRAMINE. [Concomitant]
     Active Substance: DIPHENHYDRAMINE
     Route: 065
  24. SYNTHROID [Concomitant]
     Active Substance: LEVOTHYROXINE SODIUM
     Route: 065

REACTIONS (2)
  - Heart rate increased [Unknown]
  - Dehydration [Unknown]

NARRATIVE: CASE EVENT DATE: 20180429
